FAERS Safety Report 4857131-1 (Version None)
Quarter: 2005Q4

REPORT INFORMATION
  Report Type: 
  Country: None (occurrence: None)
  Receive Date: 20051219
  Receipt Date: 20050706
  Transmission Date: 20060501
  Serious: No
  Sender: FDA-Public Use
  Company Number: US-GLAXOSMITHKLINE-A0565158A

PATIENT
  Age: 69 Year
  Sex: Male

DRUGS (1)
  1. NICODERM CQ [Suspect]
     Dates: start: 20050614, end: 20050618

REACTIONS (2)
  - APPLICATION SITE DERMATITIS [None]
  - HYPERSENSITIVITY [None]
